FAERS Safety Report 8701689 (Version 2)
Quarter: 2013Q4

REPORT INFORMATION
  Report Type: Spontaneous
  Country: US (occurrence: US)
  Receive Date: 20120803
  Receipt Date: 20131101
  Transmission Date: 20140711
  Serious: No
  Sender: FDA-Public Use
  Company Number: US-009507513-1207USA009573

PATIENT
  Age: 35 Year
  Sex: Male

DRUGS (3)
  1. PROPECIA [Suspect]
     Indication: ALOPECIA
     Dosage: 1 MG, QD
     Route: 048
     Dates: start: 200903, end: 20120724
  2. WELLBUTRIN XL [Concomitant]
  3. ATIVAN [Concomitant]

REACTIONS (4)
  - Retrograde ejaculation [Not Recovered/Not Resolved]
  - Erectile dysfunction [Not Recovered/Not Resolved]
  - Pelvic discomfort [Not Recovered/Not Resolved]
  - Ejaculation disorder [Not Recovered/Not Resolved]
